FAERS Safety Report 12337865 (Version 2)
Quarter: 2016Q2

REPORT INFORMATION
  Report Type: Spontaneous
  Country: ZA (occurrence: ZA)
  Receive Date: 20160505
  Receipt Date: 20160520
  Transmission Date: 20160815
  Serious: Yes (Other)
  Sender: FDA-Public Use
  Company Number: ZA-BAYER-2016-086380

PATIENT
  Age: 50 Year
  Sex: Female

DRUGS (1)
  1. MIRENA [Suspect]
     Active Substance: LEVONORGESTREL
     Dosage: 20 MCG/24HR, CONT
     Route: 015
     Dates: start: 20151218, end: 2016

REACTIONS (3)
  - Genital haemorrhage [Recovered/Resolved]
  - Device expulsion [None]
  - Endometrial adenocarcinoma [None]

NARRATIVE: CASE EVENT DATE: 2016
